FAERS Safety Report 16700085 (Version 2)
Quarter: 2019Q4

REPORT INFORMATION
  Report Type: Other
  Country: FR (occurrence: FR)
  Receive Date: 20190813
  Receipt Date: 20191015
  Transmission Date: 20200122
  Serious: Yes (Other)
  Sender: FDA-Public Use
  Company Number: FR-CELLTRION INC.-2019FR023677

PATIENT

DRUGS (19)
  1. DOXORUBICINE ACCORD 2 MG/ML [Suspect]
     Active Substance: DOXORUBICIN HYDROCHLORIDE
     Indication: BURKITT^S LYMPHOMA
     Dosage: 64 MG, CYCLIC
     Route: 042
     Dates: start: 20190627, end: 20190828
  2. DOLIPRANE [Concomitant]
     Active Substance: ACETAMINOPHEN
  3. HYDROXYZINE RENAUDIN 100 MG /2 ML, SOLUTION INJECTABLE [Concomitant]
  4. PLITICAN [Concomitant]
     Active Substance: ALIZAPRIDE HYDROCHLORIDE
  5. TRUXIMA [Suspect]
     Active Substance: RITUXIMAB-ABBS
     Indication: BURKITT^S LYMPHOMA
     Dosage: 400 MG, CYCLIC
     Route: 042
     Dates: start: 20190624
  6. ENDOXAN [Suspect]
     Active Substance: CYCLOPHOSPHAMIDE
     Indication: BURKITT^S LYMPHOMA
     Dosage: 321 MG, CYCLIC
     Route: 042
     Dates: start: 20190619, end: 20190828
  7. PHLOROGLUCINOL TRIMETHYLPHLOROGLUCINOL ARROW [Concomitant]
     Active Substance: PHLOROGLUCINOL
  8. FUROSEMIDE RENAUDIN [Concomitant]
     Active Substance: FUROSEMIDE
  9. METHOTREXATE MYLAN [Suspect]
     Active Substance: METHOTREXATE SODIUM
     Dosage: 64 MG, CYCLIC
     Route: 042
     Dates: start: 20190627
  10. SOLU-MEDROL [Concomitant]
     Active Substance: METHYLPREDNISOLONE SODIUM SUCCINATE
  11. VITABACT [Concomitant]
     Active Substance: PICLOXYDINE DIHYDROCHLORIDE
  12. METHOTREXATE MYLAN [Suspect]
     Active Substance: METHOTREXATE SODIUM
     Indication: BURKITT^S LYMPHOMA
     Dosage: 3200 MG, CYCLIC
     Route: 042
     Dates: start: 20190626, end: 20190828
  13. VINCRISTINE HOSPIRA 2 MG/2 ML, SOLUTION INJECTABLE [Suspect]
     Active Substance: VINCRISTINE SULFATE
     Indication: BURKITT^S LYMPHOMA
     Dosage: 1.07 MG, CYCLIC
     Route: 042
     Dates: start: 20190619, end: 20190828
  14. DEBRIDAT [Concomitant]
     Active Substance: TRIMEBUTINE MALEATE
  15. FOLINATE DE CALCIUM ZENTIVA [Concomitant]
     Active Substance: LEUCOVORIN CALCIUM
  16. PANTOPRAZOLE SODIUM. [Concomitant]
     Active Substance: PANTOPRAZOLE SODIUM
  17. DOXORUBICINE ACCORD 2 MG/ML [Suspect]
     Active Substance: DOXORUBICIN HYDROCHLORIDE
     Dosage: 64 MG, CYCLIC
     Route: 042
     Dates: start: 20190627
  18. ONDANSETRON ACCORD 2 MG/ML, SOLUTION INJECTABLE [Concomitant]
     Active Substance: ONDANSETRON HYDROCHLORIDE
  19. FORLAX 4 G [Concomitant]

REACTIONS (2)
  - Device related thrombosis [Recovered/Resolved]
  - Product use issue [Unknown]

NARRATIVE: CASE EVENT DATE: 20190716
